FAERS Safety Report 9209537 (Version 1)
Quarter: 2013Q1

REPORT INFORMATION
  Report Type: Spontaneous
  Country: US (occurrence: None)
  Receive Date: 20120820
  Receipt Date: 20120820
  Transmission Date: 20140127
  Serious: No
  Sender: FDA-Public Use
  Company Number: 1000030387

PATIENT
  Age: 38 Year
  Sex: Female

DRUGS (6)
  1. VIIBRYD [Suspect]
     Indication: DEPRESSION
     Dosage: 10 MG 1 IN 1 D
     Route: 048
     Dates: start: 20120416, end: 20120422
  2. BUSPIRONE (BUSPIRONE) (BUSPIRONE) [Concomitant]
  3. DIOVAN (VALSARTAN) (VALSARTAN) [Concomitant]
  4. LIPITOR (ATORVASTATIN CALCIUM) (ATORVASTATIN CALCIUM) [Concomitant]
  5. VISTARIL (HYDROXYZINE)(*HYDROXYZINE) [Concomitant]
  6. TRAZADONE (TRAZADONE) (TRAZADONE) [Concomitant]

REACTIONS (5)
  - Anxiety [None]
  - Headache [None]
  - Feeling abnormal [None]
  - Lethargy [None]
  - Heart rate increased [None]
